FAERS Safety Report 15400799 (Version 1)
Quarter: 2018Q3

REPORT INFORMATION
  Report Type: Report from Study
  Country: None (occurrence: US)
  Receive Date: 20180919
  Receipt Date: 20180919
  Transmission Date: 20181010
  Serious: Yes (Other)
  Sender: FDA-Public Use
  Company Number: US-ABBVIE-18K-163-2456093-00

PATIENT
  Age: 65 Year
  Sex: Female

DRUGS (1)
  1. HUMIRA [Suspect]
     Active Substance: ADALIMUMAB
     Indication: PSORIASIS
     Route: 058

REACTIONS (7)
  - Muscular weakness [Unknown]
  - Psoriasis [Recovering/Resolving]
  - Pain [Recovering/Resolving]
  - Diabetes mellitus [Recovering/Resolving]
  - Pain [Unknown]
  - Confusional state [Unknown]
  - Peripheral nerve palsy [Recovering/Resolving]

NARRATIVE: CASE EVENT DATE: 2018
